FAERS Safety Report 5010613-4 (Version None)
Quarter: 2006Q2

REPORT INFORMATION
  Report Type: 
  Country: None (occurrence: None)
  Receive Date: 20060525
  Receipt Date: 20060515
  Transmission Date: 20061013
  Serious: Yes (Hospitalization)
  Sender: FDA-Public Use
  Company Number: BEWYE628016MAY06

PATIENT
  Sex: Female

DRUGS (1)
  1. ENBREL [Suspect]
     Indication: ANKYLOSING SPONDYLITIS
     Dosage: NOT PROVIDED
     Route: 058
     Dates: start: 20060101

REACTIONS (1)
  - MYELODYSPLASTIC SYNDROME [None]
